FAERS Safety Report 13331017 (Version 1)
Quarter: 2017Q1

REPORT INFORMATION
  Report Type: Spontaneous
  Country: US (occurrence: US)
  Receive Date: 20170313
  Receipt Date: 20170313
  Transmission Date: 20170428
  Serious: No
  Sender: FDA-Public Use
  Company Number: US-009507513-1702USA007175

PATIENT
  Sex: Female
  Weight: 56.69 kg

DRUGS (1)
  1. NEXPLANON [Suspect]
     Active Substance: ETONOGESTREL
     Indication: CONTRACEPTION
     Dosage: 3 YEAR IMPLANT, IN RIGHT ARM
     Route: 059

REACTIONS (7)
  - Depression [Unknown]
  - Gastric disorder [Unknown]
  - Incorrect drug administration duration [Unknown]
  - Abdominal pain upper [Unknown]
  - Abdominal distension [Unknown]
  - Migraine [Unknown]
  - Menstruation irregular [Unknown]
